FAERS Safety Report 7618538-2 (Version None)
Quarter: 2011Q3

REPORT INFORMATION
  Report Type: 
  Country: None (occurrence: None)
  Receive Date: 20110718
  Receipt Date: 20110705
  Transmission Date: 20111222
  Serious: Yes (Other)
  Sender: FDA-Public Use
  Company Number: US-AMGEN-USASP2011034083

PATIENT
  Age: 56 Year
  Sex: Male

DRUGS (3)
  1. SULFASALAZINE [Concomitant]
     Dosage: 1 MG, QD
     Dates: start: 20100601
  2. ENBREL [Suspect]
     Indication: RHEUMATOID ARTHRITIS
     Dosage: 50 MG, QWK
     Dates: start: 20110527
  3. AZATHIOPRINE [Concomitant]
     Dosage: 1 MG, QD
     Dates: start: 20100801

REACTIONS (3)
  - RECTAL HAEMORRHAGE [None]
  - RHEUMATOID ARTHRITIS [None]
  - RECTAL PROLAPSE [None]
